FAERS Safety Report 9749173 (Version 1)
Quarter: 2013Q4

REPORT INFORMATION
  Report Type: Spontaneous
  Country: US (occurrence: US)
  Receive Date: 20131212
  Receipt Date: 20131212
  Transmission Date: 20140711
  Serious: No
  Sender: FDA-Public Use
  Company Number: US-INCYTE CORPORATION-2013IN002534

PATIENT
  Sex: Female
  Weight: 44.9 kg

DRUGS (3)
  1. JAKAFI [Suspect]
     Indication: MYELOFIBROSIS
     Dosage: 10 MG, BID
     Route: 048
     Dates: start: 201303
  2. JAKAFI [Suspect]
     Dosage: 20 MG
     Route: 048
  3. JAKAFI [Suspect]
     Dosage: 15 MG
     Route: 048

REACTIONS (1)
  - Muscle spasms [Unknown]
